FAERS Safety Report 6471877-3 (Version None)
Quarter: 2009Q4

REPORT INFORMATION
  Report Type: 
  Country: None (occurrence: None)
  Receive Date: 20091203
  Receipt Date: 20091201
  Transmission Date: 20100525
  Serious: Yes (Hospitalization)
  Sender: FDA-Public Use
  Company Number: US-B.I. PHARMACEUTICALS,INC./RIDGEFIELD-2009-BP-11851BP

PATIENT
  Sex: Female

DRUGS (17)
  1. SPIRIVA [Suspect]
     Indication: CHRONIC OBSTRUCTIVE PULMONARY DISEASE
     Dosage: 36 MCG
     Route: 055
     Dates: start: 20050101, end: 20070401
  2. SPIRIVA [Suspect]
     Indication: ASTHMA
  3. ADVAIR DISKUS 100/50 [Suspect]
     Indication: CHRONIC OBSTRUCTIVE PULMONARY DISEASE
     Dates: start: 20050101, end: 20070401
  4. THEOPHYLLINE [Concomitant]
     Indication: CHRONIC OBSTRUCTIVE PULMONARY DISEASE
     Dates: start: 20070401
  5. ATROVENT [Concomitant]
     Indication: CHRONIC OBSTRUCTIVE PULMONARY DISEASE
     Dates: start: 20070401
  6. XOPENEX [Concomitant]
     Indication: CHRONIC OBSTRUCTIVE PULMONARY DISEASE
     Dates: start: 20090101
  7. SYMBICORT [Concomitant]
  8. PREDNISONE [Concomitant]
  9. CARDIZEM [Concomitant]
  10. MUCINEX [Concomitant]
  11. PROTONIX [Concomitant]
  12. FLONASE [Concomitant]
  13. PAXIL [Concomitant]
  14. XANAX [Concomitant]
  15. ACTONEL [Concomitant]
  16. CALCIUM [Concomitant]
  17. ZYRTEC [Concomitant]

REACTIONS (1)
  - PNEUMONIA [None]
